FAERS Safety Report 6101952-4 (Version None)
Quarter: 2009Q1

REPORT INFORMATION
  Report Type: 
  Country: None (occurrence: None)
  Receive Date: 20090303
  Receipt Date: 20090303
  Transmission Date: 20090719
  Serious: Yes (Other)
  Sender: FDA-Public Use
  Company Number: None

PATIENT
  Age: 29 Year
  Sex: Male
  Weight: 74.8435 kg

DRUGS (2)
  1. NEURONTIN [Suspect]
     Indication: FACIAL PAIN
     Dosage: 300 3/DAILY PO
     Route: 048
     Dates: start: 20090101, end: 20090218
  2. NEURONTIN [Suspect]
     Indication: HEADACHE
     Dosage: 300 3/DAILY PO
     Route: 048
     Dates: start: 20090101, end: 20090218

REACTIONS (4)
  - DEPRESSION [None]
  - EMOTIONAL DISORDER [None]
  - MOOD ALTERED [None]
  - SUICIDAL IDEATION [None]
